FAERS Safety Report 12104968 (Version 1)
Quarter: 2016Q1

REPORT INFORMATION
  Report Type: Spontaneous
  Country: IN (occurrence: IN)
  Receive Date: 20160223
  Receipt Date: 20160223
  Transmission Date: 20160526
  Serious: Yes (Death)
  Sender: FDA-Public Use
  Company Number: IN-009507513-1602IND010106

PATIENT
  Age: 83 Year
  Sex: Male

DRUGS (1)
  1. JANUMET [Suspect]
     Active Substance: METFORMIN HYDROCHLORIDE\SITAGLIPTIN PHOSPHATE
     Indication: DIABETES MELLITUS
     Dosage: 1 DF, OD, STRENGTH: 50/500 (UNITS UNSPECIFIED)
     Route: 048

REACTIONS (2)
  - Death [Fatal]
  - Fall [Unknown]
